FAERS Safety Report 7349659-X (Version None)
Quarter: 2011Q1

REPORT INFORMATION
  Report Type: 
  Country: None (occurrence: None)
  Receive Date: 20110309
  Receipt Date: 20110309
  Transmission Date: 20110831
  Serious: Yes (Hospitalization)
  Sender: FDA-Public Use
  Company Number: None

PATIENT
  Sex: Female
  Weight: 56.9718 kg

DRUGS (1)
  1. FLUOROURACIL [Suspect]
     Indication: COLON CANCER STAGE III
     Dosage: 2040 MG/M2 5/FU DAILY IV
     Route: 042
     Dates: end: 20110215

REACTIONS (2)
  - DEHYDRATION [None]
  - DIARRHOEA [None]
